FAERS Safety Report 4753451-X (Version None)
Quarter: 2005Q3

REPORT INFORMATION
  Report Type: 
  Country: None (occurrence: None)
  Receive Date: 20050826
  Receipt Date: 20050322
  Transmission Date: 20060218
  Serious: Yes (Death, Hospitalization)
  Sender: FDA-Public Use
  Company Number: FI-ROCHE-399326

PATIENT
  Age: 57 Year
  Sex: Female

DRUGS (6)
  1. CAPECITABINE [Suspect]
     Indication: BREAST CANCER
     Route: 048
     Dates: start: 20050217, end: 20050228
  2. CAPECITABINE [Suspect]
     Dosage: DOSED AS 1000+1500MG
     Route: 048
     Dates: start: 20050301, end: 20050302
  3. DOCETAXEL [Suspect]
     Indication: BREAST CANCER
     Route: 042
     Dates: start: 20050127
  4. EFFEXOR [Concomitant]
  5. SIMVASTATIN [Concomitant]
     Dosage: ^SIMVASTATIN RATIOPHARM 2YG X1^
  6. PRIMASPAN [Concomitant]

REACTIONS (17)
  - ACUTE RESPIRATORY DISTRESS SYNDROME [None]
  - BRAIN OEDEMA [None]
  - CEREBRAL DISORDER [None]
  - DEPRESSED LEVEL OF CONSCIOUSNESS [None]
  - DIARRHOEA [None]
  - DISSEMINATED INTRAVASCULAR COAGULATION [None]
  - GENERAL PHYSICAL HEALTH DETERIORATION [None]
  - HEPATIC FAILURE [None]
  - HEPATIC NECROSIS [None]
  - MULTI-ORGAN FAILURE [None]
  - NECROSIS [None]
  - NECROTISING COLITIS [None]
  - RENAL CORTICAL NECROSIS [None]
  - RENAL FAILURE [None]
  - SEPSIS [None]
  - SEPTIC SHOCK [None]
  - VOMITING [None]
